FAERS Safety Report 9817187 (Version 1)
Quarter: 2014Q1

REPORT INFORMATION
  Report Type: Spontaneous
  Country: GB (occurrence: GB)
  Receive Date: 20140114
  Receipt Date: 20140114
  Transmission Date: 20141002
  Serious: Yes (Other)
  Sender: FDA-Public Use
  Company Number: PHHY2014GB002452

PATIENT
  Sex: Female
  Weight: 95.25 kg

DRUGS (1)
  1. METRONIDAZOLE [Suspect]
     Indication: TOOTH ABSCESS
     Dosage: 200 MG, TID
     Route: 048
     Dates: start: 20121218, end: 20121221

REACTIONS (5)
  - Disorientation [Recovered/Resolved]
  - Wound secretion [Recovered/Resolved]
  - Swelling face [Recovered/Resolved]
  - Erythema [Recovered/Resolved]
  - Skin exfoliation [Recovered/Resolved]
